FAERS Safety Report 13543309 (Version 15)
Quarter: 2019Q1

REPORT INFORMATION
  Report Type: Report from Study
  Country: US (occurrence: US)
  Receive Date: 20170514
  Receipt Date: 20190225
  Transmission Date: 20190417
  Serious: Yes (Hospitalization)
  Sender: FDA-Public Use
  Company Number: PHHO2017US007627

PATIENT
  Age: 56 Year
  Sex: Male
  Weight: 123 kg

DRUGS (21)
  1. FARYDAK [Suspect]
     Active Substance: PANOBINOSTAT
     Indication: PLASMA CELL MYELOMA
     Dosage: 20 MG, TIW
     Route: 048
     Dates: start: 20170327, end: 20170428
  2. SENNOSIDES A+B [Concomitant]
     Active Substance: SENNOSIDES A AND B
     Indication: CONSTIPATION
     Dosage: 25 MG, QD
     Route: 048
     Dates: start: 20161114
  3. FARYDAK [Suspect]
     Active Substance: PANOBINOSTAT
     Dosage: 15 MG
     Route: 048
     Dates: start: 20170508
  4. PRAVASTATIN. [Concomitant]
     Active Substance: PRAVASTATIN
     Indication: HYPO HDL CHOLESTEROLAEMIA
     Dosage: 20 MG, QD
     Route: 048
     Dates: start: 201309
  5. GABAPENTIN. [Concomitant]
     Active Substance: GABAPENTIN
     Indication: BACK PAIN
     Dosage: 600 MG, BID
     Route: 048
     Dates: start: 20161121
  6. NORMAL SALINE [Concomitant]
     Active Substance: SODIUM CHLORIDE
     Indication: HYPOTENSION
     Dosage: 1000 ML, PRN
     Route: 058
     Dates: start: 20170518
  7. SENNOSIDES A+B [Concomitant]
     Active Substance: SENNOSIDES A AND B
     Indication: CONSTIPATION PROPHYLAXIS
     Dosage: 25 MG, QD
     Route: 048
     Dates: start: 20161114
  8. ALBUTEROL. [Concomitant]
     Active Substance: ALBUTEROL
     Indication: CHRONIC OBSTRUCTIVE PULMONARY DISEASE
     Dosage: MG, Q6H
     Route: 055
     Dates: start: 20170501
  9. ALBUTEROL. [Concomitant]
     Active Substance: ALBUTEROL
     Indication: PNEUMONIA
  10. CALCIUM GLUCONATE. [Concomitant]
     Active Substance: CALCIUM GLUCONATE
     Indication: PROPHYLAXIS
     Dosage: 1000 MG, PRN
     Route: 042
     Dates: start: 20170519
  11. LORAZEPAM. [Concomitant]
     Active Substance: LORAZEPAM
     Indication: INSOMNIA
     Dosage: 1 MG, QD
     Route: 048
     Dates: start: 20170518
  12. BORTEZOMIB. [Suspect]
     Active Substance: BORTEZOMIB
     Indication: PLASMA CELL MYELOMA
     Dosage: 3 MG, OT
     Route: 058
     Dates: start: 20170327
  13. LISINOPRIL. [Concomitant]
     Active Substance: LISINOPRIL
     Indication: HYPERTENSION
     Dosage: 5 MG, QD
     Route: 048
     Dates: start: 20161129
  14. CLARITIN [Concomitant]
     Active Substance: LORATADINE
     Indication: MIDDLE EAR EFFUSION
     Dosage: 6 MG, PRN
     Route: 048
     Dates: start: 20170518
  15. POTASSIUM CHLORIDE. [Concomitant]
     Active Substance: POTASSIUM CHLORIDE
     Indication: HYPOKALAEMIA
     Dosage: 40 MG, PRN
     Route: 048
     Dates: start: 201608
  16. PROMETHAZINE [Concomitant]
     Active Substance: PROMETHAZINE\PROMETHAZINE HYDROCHLORIDE
     Indication: PROPHYLAXIS OF NAUSEA AND VOMITING
     Dosage: 25 MG, Q6H
     Route: 048
     Dates: start: 20170406
  17. CLOTRIMAZOLE. [Concomitant]
     Active Substance: CLOTRIMAZOLE
     Indication: INFECTION PROPHYLAXIS
     Dosage: 10 MG, QID
     Route: 048
     Dates: start: 20170518
  18. FLUTICASONE. [Concomitant]
     Active Substance: FLUTICASONE
     Indication: MIDDLE EAR EFFUSION
     Dosage: MG, BID
     Route: 055
     Dates: start: 20170518
  19. CHLORHEXIDINE GLUCONATE. [Concomitant]
     Active Substance: CHLORHEXIDINE GLUCONATE
     Indication: PROPHYLAXIS
     Dosage: 15 ML, BID
     Route: 048
     Dates: start: 20170518
  20. DEXAMETHASONE. [Suspect]
     Active Substance: DEXAMETHASONE
     Indication: PLASMA CELL MYELOMA
     Dosage: 20 MG, OT
     Route: 048
     Dates: start: 20170327
  21. FAMOTIDINE. [Concomitant]
     Active Substance: FAMOTIDINE
     Indication: GASTROOESOPHAGEAL REFLUX DISEASE
     Dosage: 20 MG, BID
     Route: 048
     Dates: start: 20170518

REACTIONS (3)
  - Pulmonary embolism [Recovered/Resolved]
  - Thrombocytopenia [Recovering/Resolving]
  - Pneumonia aspiration [Recovered/Resolved]

NARRATIVE: CASE EVENT DATE: 20170430
